FAERS Safety Report 12340507 (Version 1)
Quarter: 2016Q2

REPORT INFORMATION
  Report Type: Spontaneous
  Country: US (occurrence: None)
  Receive Date: 20160505
  Receipt Date: 20160505
  Transmission Date: 20160815
  Serious: No
  Sender: FDA-Public Use
  Company Number: None

PATIENT
  Age: 61 Year
  Sex: Male

DRUGS (1)
  1. MYCOPHENOLIC TAB 180MG DR [Suspect]
     Active Substance: MYCOPHENOLIC ACID

REACTIONS (1)
  - Anaemia [None]

NARRATIVE: CASE EVENT DATE: 20160504
